FAERS Safety Report 6762888-9 (Version None)
Quarter: 2010Q2

REPORT INFORMATION
  Report Type: 
  Country: None (occurrence: None)
  Receive Date: 20100609
  Receipt Date: 20100528
  Transmission Date: 20101027
  Serious: Yes (Other)
  Sender: FDA-Public Use
  Company Number: US-PFIZER INC-2010068235

PATIENT
  Sex: Female
  Weight: 61.224 kg

DRUGS (1)
  1. LYRICA [Suspect]
     Indication: NEURALGIA
     Dosage: 50 MG, 2X/DAY
     Route: 048
     Dates: start: 20100527, end: 20100527

REACTIONS (7)
  - ACTIVITIES OF DAILY LIVING IMPAIRED [None]
  - APHAGIA [None]
  - DIZZINESS POSTURAL [None]
  - FEELING ABNORMAL [None]
  - FEELING DRUNK [None]
  - IMPAIRED WORK ABILITY [None]
  - SOMNOLENCE [None]
